FAERS Safety Report 18086750 (Version 1)
Quarter: 2020Q3

REPORT INFORMATION
  Report Type: Spontaneous
  Country: US (occurrence: US)
  Receive Date: 20200729
  Receipt Date: 20200729
  Transmission Date: 20201103
  Serious: Yes (Hospitalization)
  Sender: FDA-Public Use
  Company Number: None

PATIENT
  Age: 19 Year
  Sex: Male
  Weight: 61.2 kg

DRUGS (6)
  1. METHOTREXATE. [Suspect]
     Active Substance: METHOTREXATE
  2. CYTARABINE. [Suspect]
     Active Substance: CYTARABINE
  3. VINCRISTINE SULFATE. [Suspect]
     Active Substance: VINCRISTINE SULFATE
  4. MERCAPTOPURINE. [Suspect]
     Active Substance: MERCAPTOPURINE
  5. CYCLOPHOSPHAMIDE. [Suspect]
     Active Substance: CYCLOPHOSPHAMIDE
  6. ONCASPAR [Suspect]
     Active Substance: PEGASPARGASE

REACTIONS (3)
  - Aphasia [None]
  - Dysarthria [None]
  - Skin wrinkling [None]

NARRATIVE: CASE EVENT DATE: 20200722
